FAERS Safety Report 6100496-3 (Version None)
Quarter: 2009Q1

REPORT INFORMATION
  Report Type: 
  Country: None (occurrence: None)
  Receive Date: 20090226
  Receipt Date: 20090213
  Transmission Date: 20090719
  Serious: Yes (Hospitalization)
  Sender: FDA-Public Use
  Company Number: MIN-00465

PATIENT
  Age: 15 Year
  Sex: Female

DRUGS (2)
  1. MINOCYCLINE HYDROCHLORIDE [Suspect]
     Indication: ACNE
     Dosage: 100 MG DAILY
  2. MINOCYCLINE HYDROCHLORIDE [Suspect]
     Indication: ACNE
     Dosage: 100 MG DAILY

REACTIONS (5)
  - ANTI-SS-A ANTIBODY POSITIVE [None]
  - ANTINUCLEAR ANTIBODY INCREASED [None]
  - BASEDOW'S DISEASE [None]
  - DRUG RASH WITH EOSINOPHILIA AND SYSTEMIC SYMPTOMS [None]
  - TYPE 1 DIABETES MELLITUS [None]
